FAERS Safety Report 15797063 (Version 1)
Quarter: 2019Q1

REPORT INFORMATION
  Report Type: Spontaneous
  Country: US (occurrence: US)
  Receive Date: 20190107
  Receipt Date: 20190107
  Transmission Date: 20190417
  Serious: Yes (Life-Threatening)
  Sender: FDA-Public Use
  Company Number: None

PATIENT
  Age: 51 Year
  Sex: Female
  Weight: 68.4 kg

DRUGS (1)
  1. LOSARTAN POTASSIUM TABLETS USP 100 MG NDC-13668-115-90 [Suspect]
     Active Substance: LOSARTAN POTASSIUM
     Indication: HYPERTENSION
     Dosage: ?          QUANTITY:90 TABLET(S);?
     Route: 048
     Dates: start: 20161130, end: 20190105

REACTIONS (2)
  - Recalled product [None]
  - Renal cell carcinoma [None]

NARRATIVE: CASE EVENT DATE: 20180418
